FAERS Safety Report 25407065 (Version 1)
Quarter: 2025Q2

REPORT INFORMATION
  Report Type: Spontaneous
  Country: US (occurrence: US)
  Receive Date: 20250606
  Receipt Date: 20250606
  Transmission Date: 20250716
  Serious: No
  Sender: MYLAN
  Company Number: US-MYLANLABS-2025M1045400

PATIENT
  Sex: Female

DRUGS (4)
  1. NEURONTIN [Suspect]
     Active Substance: GABAPENTIN
     Indication: Neuralgia
     Dosage: 300 MILLIGRAM, TID (1 CAPSULE BY MOUTH 3 TIMES DAILY)
  2. NEURONTIN [Suspect]
     Active Substance: GABAPENTIN
     Dosage: 300 MILLIGRAM, TID (1 CAPSULE BY MOUTH 3 TIMES DAILY)
     Route: 048
  3. NEURONTIN [Suspect]
     Active Substance: GABAPENTIN
     Dosage: 300 MILLIGRAM, TID (1 CAPSULE BY MOUTH 3 TIMES DAILY)
     Route: 048
  4. NEURONTIN [Suspect]
     Active Substance: GABAPENTIN
     Dosage: 300 MILLIGRAM, TID (1 CAPSULE BY MOUTH 3 TIMES DAILY)

REACTIONS (1)
  - Off label use [Unknown]
